FAERS Safety Report 6237198-9 (Version None)
Quarter: 2009Q2

REPORT INFORMATION
  Report Type: 
  Country: None (occurrence: None)
  Receive Date: 20090619
  Receipt Date: 20090617
  Transmission Date: 20091009
  Serious: Yes (Hospitalization)
  Sender: FDA-Public Use
  Company Number: DE-JNJFOC-20080903024

PATIENT
  Sex: Female
  Weight: 85 kg

DRUGS (5)
  1. INVEGA [Suspect]
     Indication: PSYCHOTIC DISORDER
     Route: 048
  2. CIPRAMIL [Suspect]
     Indication: DRUG USE FOR UNKNOWN INDICATION
     Route: 048
  3. FOLIC ACID [Suspect]
     Indication: DRUG USE FOR UNKNOWN INDICATION
     Route: 048
  4. IODID [Suspect]
     Indication: DRUG USE FOR UNKNOWN INDICATION
     Route: 048
  5. IRON [Suspect]
     Indication: DRUG USE FOR UNKNOWN INDICATION
     Route: 048

REACTIONS (2)
  - ADVERSE EVENT [None]
  - DRUG EXPOSURE DURING PREGNANCY [None]
